FAERS Safety Report 13540678 (Version 2)
Quarter: 2017Q2

REPORT INFORMATION
  Report Type: Spontaneous
  Country: US (occurrence: US)
  Receive Date: 20170512
  Receipt Date: 20170623
  Transmission Date: 20170830
  Serious: No
  Sender: FDA-Public Use
  Company Number: US-ASTRAZENECA-2017SE49675

PATIENT
  Age: 96 Year
  Sex: Female
  Weight: 59 kg

DRUGS (6)
  1. EYE DROPS [Concomitant]
     Active Substance: UNSPECIFIED INGREDIENT
     Indication: GLAUCOMA
  2. SINGULAIR [Concomitant]
     Active Substance: MONTELUKAST SODIUM
     Indication: LUNG DISORDER
  3. SINGULAIR [Concomitant]
     Active Substance: MONTELUKAST SODIUM
     Indication: DYSPNOEA
  4. OXYGEN. [Concomitant]
     Active Substance: OXYGEN
     Dosage: INTERNITTENLY
     Dates: end: 201704
  5. OXYGEN. [Concomitant]
     Active Substance: OXYGEN
     Dosage: ALL THE TIME
     Dates: start: 201704
  6. TUDORZA PRESSAIR [Suspect]
     Active Substance: ACLIDINIUM BROMIDE
     Indication: CHRONIC OBSTRUCTIVE PULMONARY DISEASE
     Route: 055

REACTIONS (6)
  - Spinal column stenosis [Unknown]
  - Wrong technique in device usage process [Unknown]
  - Product quality issue [Unknown]
  - Weight decreased [Unknown]
  - Bedridden [Unknown]
  - Gait disturbance [Unknown]
